FAERS Safety Report 6044442-X (Version None)
Quarter: 2009Q1

REPORT INFORMATION
  Report Type: 
  Country: None (occurrence: None)
  Receive Date: 20090120
  Receipt Date: 20090107
  Transmission Date: 20090719
  Serious: Yes (Hospitalization)
  Sender: FDA-Public Use
  Company Number: US-PFIZER INC-2005063108

PATIENT
  Sex: Female
  Weight: 61 kg

DRUGS (3)
  1. INHALED HUMAN INSULIN [Suspect]
     Indication: TYPE 1 DIABETES MELLITUS
     Dosage: 5 MG, 3X/DAY
     Route: 055
     Dates: start: 20050411, end: 20050420
  2. *INSULIN GLARGINE [Suspect]
     Indication: TYPE 1 DIABETES MELLITUS
     Dosage: 50 IU, QHS
     Route: 058
     Dates: start: 19990101
  3. VITAMINS, OTHER COMBINATIONS [Concomitant]
     Route: 048
     Dates: start: 20041211

REACTIONS (1)
  - ABORTION SPONTANEOUS [None]
